FAERS Safety Report 8506700-6 (Version None)
Quarter: 2012Q3

REPORT INFORMATION
  Report Type: 
  Country: None (occurrence: None)
  Receive Date: 20120712
  Receipt Date: 20120709
  Transmission Date: 20120928
  Serious: Yes (Other)
  Sender: FDA-Public Use
  Company Number: US-PFIZER INC-2012165092

PATIENT
  Sex: Female
  Weight: 86.168 kg

DRUGS (5)
  1. PREMPRO [Suspect]
     Indication: POSTMENOPAUSE
     Dosage: UNK
     Route: 048
  2. THYROID TAB [Concomitant]
     Indication: HYPOTHYROIDISM
     Dosage: UNK
     Dates: start: 19610101
  3. PREMPRO [Suspect]
     Dosage: 0.625/5.0 MG ONE HALF TABLET EVERY 36 HOURS
     Route: 048
  4. SYMBICORT [Concomitant]
     Indication: ASTHMA
     Dosage: UNK
  5. AZOR [Concomitant]
     Indication: HYPERTENSION
     Dosage: UNK

REACTIONS (10)
  - BREAST CANCER FEMALE [None]
  - BLOOD PRESSURE INCREASED [None]
  - MUSCLE SPASMS [None]
  - TREMOR [None]
  - NERVOUSNESS [None]
  - WRONG TECHNIQUE IN DRUG USAGE PROCESS [None]
  - DISORIENTATION [None]
  - DIZZINESS [None]
  - EMOTIONAL DISORDER [None]
  - STRESS [None]
